FAERS Safety Report 21297011 (Version 1)
Quarter: 2022Q3

REPORT INFORMATION
  Report Type: Spontaneous
  Country: US (occurrence: None)
  Receive Date: 20220902
  Receipt Date: 20220902
  Transmission Date: 20221026
  Serious: Yes (Life-Threatening)
  Sender: FDA-Public Use
  Company Number: None

PATIENT
  Age: 62 Year
  Sex: Male
  Weight: 96 kg

DRUGS (2)
  1. TRIAMCINOLONE [Suspect]
     Active Substance: TRIAMCINOLONE
     Indication: Arthralgia
     Dosage: 40 MG ONCE OTHER?
     Dates: start: 20220810, end: 20220810
  2. LIDOCAINE HYDROCHLORIDE [Suspect]
     Active Substance: LIDOCAINE HYDROCHLORIDE
     Indication: Arthralgia
     Dosage: 2 ML ONCE OTHER ?
     Dates: start: 20220810, end: 20220810

REACTIONS (7)
  - Flushing [None]
  - Urticaria [None]
  - Erythema [None]
  - Dyspnoea [None]
  - Wheezing [None]
  - Paraesthesia oral [None]
  - Pruritus [None]

NARRATIVE: CASE EVENT DATE: 20220810
